FAERS Safety Report 20541334 (Version 1)
Quarter: 2022Q1

REPORT INFORMATION
  Report Type: Spontaneous
  Country: US (occurrence: US)
  Receive Date: 20220302
  Receipt Date: 20220302
  Transmission Date: 20220424
  Serious: Yes (Other)
  Sender: FDA-Public Use
  Company Number: US-CELGENE-USA-20220208411

PATIENT
  Age: 61 Year
  Sex: Female
  Weight: 67.646 kg

DRUGS (1)
  1. REVLIMID [Suspect]
     Active Substance: LENALIDOMIDE
     Indication: Plasma cell myeloma
     Dosage: 16.6667 MILLIGRAM
     Route: 048
     Dates: start: 202202

REACTIONS (3)
  - Syncope [Recovered/Resolved with Sequelae]
  - Fall [Recovered/Resolved with Sequelae]
  - Constipation [Recovered/Resolved with Sequelae]

NARRATIVE: CASE EVENT DATE: 20220201
